FAERS Safety Report 17362549 (Version 1)
Quarter: 2020Q1

REPORT INFORMATION
  Report Type: Spontaneous
  Country: US (occurrence: US)
  Receive Date: 20200202
  Receipt Date: 20200202
  Transmission Date: 20200409
  Serious: No
  Sender: FDA-Public Use
  Company Number: None

PATIENT
  Age: 3 Year
  Sex: Male
  Weight: 20.25 kg

DRUGS (2)
  1. MONTELUKAST SODIUM CHEWABLE [Suspect]
     Active Substance: MONTELUKAST SODIUM
     Indication: HYPERSENSITIVITY
     Dosage: ?          QUANTITY:1 TABLET(S);?
     Route: 048
     Dates: start: 20180401, end: 20200101
  2. MONTELUKAST SODIUM CHEWABLE [Suspect]
     Active Substance: MONTELUKAST SODIUM
     Indication: RHINITIS
     Dosage: ?          QUANTITY:1 TABLET(S);?
     Route: 048
     Dates: start: 20180401, end: 20200101

REACTIONS (7)
  - Anxiety [None]
  - Abnormal behaviour [None]
  - Restless legs syndrome [None]
  - Insomnia [None]
  - Hallucination [None]
  - Epistaxis [None]
  - Depression [None]

NARRATIVE: CASE EVENT DATE: 20180410
